FAERS Safety Report 4992921-6 (Version None)
Quarter: 2006Q2

REPORT INFORMATION
  Report Type: 
  Country: None (occurrence: None)
  Receive Date: 20060504
  Receipt Date: 20050310
  Transmission Date: 20061013
  Serious: Yes (Hospitalization, Disabling)
  Sender: FDA-Public Use
  Company Number: US-MERCK-0503USA02196

PATIENT
  Age: 74 Year
  Sex: Female
  Weight: 79 kg

DRUGS (5)
  1. VIOXX [Suspect]
     Indication: PAIN
     Route: 048
     Dates: start: 20000405, end: 20000416
  2. VIOXX [Suspect]
     Route: 048
     Dates: start: 20000417, end: 20040919
  3. VIOXX [Suspect]
     Indication: OSTEOARTHRITIS
     Route: 048
     Dates: start: 20000405, end: 20000416
  4. VIOXX [Suspect]
     Route: 048
     Dates: start: 20000417, end: 20040919
  5. ASPIRIN [Concomitant]
     Indication: PAIN
     Route: 065

REACTIONS (9)
  - ABDOMINAL DISTENSION [None]
  - CEREBROVASCULAR ACCIDENT [None]
  - DEPRESSION [None]
  - HYPERLIPIDAEMIA [None]
  - HYPERTENSION [None]
  - INSOMNIA [None]
  - OVERDOSE [None]
  - PERIARTHRITIS [None]
  - RHEUMATOID FACTOR POSITIVE [None]
